FAERS Safety Report 7587196-8 (Version None)
Quarter: 2011Q3

REPORT INFORMATION
  Report Type: 
  Country: None (occurrence: None)
  Receive Date: 20110701
  Receipt Date: 20110620
  Transmission Date: 20111222
  Serious: Yes (Other)
  Sender: FDA-Public Use
  Company Number: US-ELI_LILLY_AND_COMPANY-US201104006521

PATIENT
  Sex: Female

DRUGS (2)
  1. HUMALOG [Suspect]
     Indication: DIABETES MELLITUS
     Dosage: UNK
  2. HUMALOG [Suspect]
     Dosage: UNK

REACTIONS (7)
  - PROCEDURAL COMPLICATION [None]
  - POST-TRAUMATIC STRESS DISORDER [None]
  - EYE INFECTION [None]
  - CORNEAL DISORDER [None]
  - CATARACT [None]
  - MEMORY IMPAIRMENT [None]
  - BLINDNESS UNILATERAL [None]
